FAERS Safety Report 6145575-X (Version None)
Quarter: 2009Q2

REPORT INFORMATION
  Report Type: 
  Country: None (occurrence: None)
  Receive Date: 20090407
  Receipt Date: 20090402
  Transmission Date: 20091009
  Serious: Yes (Death)
  Sender: FDA-Public Use
  Company Number: US-RB-007707-08

PATIENT
  Sex: Male

DRUGS (2)
  1. SUBOXONE [Suspect]
     Route: 060
     Dates: start: 20081110
  2. SUBOXONE [Suspect]
     Dosage: AMOUNT AND FREQUENCY INJECTED UNKNOWN
     Route: 042
     Dates: end: 20081201

REACTIONS (4)
  - CHILLS [None]
  - HAEMOPTYSIS [None]
  - INTENTIONAL DRUG MISUSE [None]
  - PYREXIA [None]
